FAERS Safety Report 5373788-3 (Version None)
Quarter: 2007Q2

REPORT INFORMATION
  Report Type: 
  Country: None (occurrence: None)
  Receive Date: 20070615
  Receipt Date: 20070109
  Transmission Date: 20071010
  Serious: Yes (Other)
  Sender: FDA-Public Use
  Company Number: 200710119US

PATIENT
  Age: 73 Year
  Sex: Female

DRUGS (13)
  1. LANTUS [Suspect]
     Indication: DIABETES MELLITUS NON-INSULIN-DEPENDENT
     Dates: start: 19890101
  2. LANTUS [Suspect]
     Indication: DIABETES MELLITUS NON-INSULIN-DEPENDENT
     Dosage: 15 U/DAY
     Dates: start: 20061127
  3. LANTUS [Suspect]
     Indication: DIABETES MELLITUS NON-INSULIN-DEPENDENT
     Dosage: 15 U QD
     Dates: start: 20061127
  4. OPTICLIK [Suspect]
     Dates: start: 20061127
  5. SOTALOL HYDROCHLORIDE [Suspect]
     Dosage: 80 MG BID
     Dates: start: 20061106
  6. MAXZIDE [Concomitant]
  7. COZAAR [Concomitant]
  8. AMITRIPTYLINE HYDROCHLORIDE (ELAVIL /00002202/) [Concomitant]
  9. COUMADIN [Concomitant]
  10. XANAX [Concomitant]
  11. NOVOLOG [Concomitant]
  12. FUROSEMIDE (LASIX /00032601/) [Concomitant]
  13. ZOCOR [Concomitant]

REACTIONS (4)
  - BLOOD GLUCOSE INCREASED [None]
  - DRUG INEFFECTIVE [None]
  - HYPOGLYCAEMIA [None]
  - NAUSEA [None]
